FAERS Safety Report 7304003-9 (Version None)
Quarter: 2011Q1

REPORT INFORMATION
  Report Type: 
  Country: None (occurrence: None)
  Receive Date: 20110221
  Receipt Date: 20110209
  Transmission Date: 20110831
  Serious: Yes (Life-Threatening)
  Sender: FDA-Public Use
  Company Number: JP-MERCK-1011USA03553

PATIENT
  Age: 62 Year
  Sex: Male

DRUGS (7)
  1. EMEND [Suspect]
     Indication: PROPHYLAXIS OF NAUSEA AND VOMITING
     Route: 048
     Dates: start: 20100526, end: 20100526
  2. PLATOSIN [Concomitant]
     Route: 065
     Dates: start: 20100526
  3. DEXART [Concomitant]
     Route: 065
     Dates: start: 20100526
  4. FLUOROURACIL [Concomitant]
     Route: 065
     Dates: start: 20100526, end: 20100530
  5. EMEND [Suspect]
     Route: 048
     Dates: start: 20100527, end: 20100528
  6. TAXOTERE [Suspect]
     Indication: TONGUE NEOPLASM MALIGNANT STAGE UNSPECIFIED
     Route: 041
     Dates: start: 20100526, end: 20100526
  7. GRANISETRON HYDROCHLORIDE [Concomitant]
     Route: 065
     Dates: start: 20100526

REACTIONS (5)
  - FEBRILE NEUTROPENIA [None]
  - SEPTIC SHOCK [None]
  - RADIATION SKIN INJURY [None]
  - RADIATION MUCOSITIS [None]
  - DRUG INTERACTION [None]
